FAERS Safety Report 22194509 (Version 1)
Quarter: 2023Q2

REPORT INFORMATION
  Report Type: Spontaneous
  Country: US (occurrence: US)
  Receive Date: 20230411
  Receipt Date: 20230411
  Transmission Date: 20230722
  Serious: No
  Sender: FDA-Public Use
  Company Number: US-ABBVIE-4698127

PATIENT
  Sex: Female

DRUGS (1)
  1. HUMIRA [Suspect]
     Active Substance: ADALIMUMAB
     Indication: Psoriatic arthropathy
     Route: 058

REACTIONS (4)
  - Wrong technique in product usage process [Not Recovered/Not Resolved]
  - Paraesthesia [Unknown]
  - Injection site reaction [Unknown]
  - Flushing [Unknown]

NARRATIVE: CASE EVENT DATE: 20230101
